FAERS Safety Report 9555941 (Version 1)
Quarter: 2013Q3

REPORT INFORMATION
  Report Type: Other
  Country: GB (occurrence: GB)
  Receive Date: 20130926
  Receipt Date: 20130926
  Transmission Date: 20140515
  Serious: Yes (Other)
  Sender: FDA-Public Use
  Company Number: GB-SUN PHARMACEUTICAL INDUSTRIES LTD-2013SUN04736

PATIENT
  Age: 42 Year
  Sex: Female
  Weight: 53 kg

DRUGS (2)
  1. SUMATRIPTAN SUCCINATE INJECTION 6 MG/0.5 ML [Suspect]
     Indication: PRODUCT USED FOR UNKNOWN INDICATION
     Dosage: UNK
     Route: 065
     Dates: start: 20130522
  2. FEXOFENADINE [Concomitant]
     Dosage: UNK
     Dates: start: 20130701, end: 20130729

REACTIONS (3)
  - Pharyngeal oedema [Unknown]
  - Dyspnoea [Recovering/Resolving]
  - Asthenia [Unknown]
